FAERS Safety Report 9705557 (Version 2)
Quarter: 2013Q4

REPORT INFORMATION
  Report Type: Spontaneous
  Country: US (occurrence: US)
  Receive Date: 20131122
  Receipt Date: 20131122
  Transmission Date: 20140711
  Serious: No
  Sender: FDA-Public Use
  Company Number: US-GILEAD-2008-0016910

PATIENT
  Age: 53 Year
  Sex: Male

DRUGS (3)
  1. LETAIRIS [Suspect]
     Indication: PULMONARY ARTERIAL HYPERTENSION
     Dates: start: 20080611
  2. REVATIO [Concomitant]
     Dates: end: 20080612
  3. REMODULIN [Concomitant]

REACTIONS (2)
  - Dyspnoea [None]
  - Fluid retention [None]
